FAERS Safety Report 11067987 (Version 1)
Quarter: 2015Q2

REPORT INFORMATION
  Report Type: Spontaneous
  Country: TR (occurrence: TR)
  Receive Date: 20150427
  Receipt Date: 20150427
  Transmission Date: 20150821
  Serious: Yes (Hospitalization)
  Sender: FDA-Public Use
  Company Number: TR-CIPLA LTD.-2015TR03230

PATIENT

DRUGS (8)
  1. SUVOXAMINE [Suspect]
     Active Substance: FLUVOXAMINE
     Indication: PSYCHOTIC DISORDER
     Dosage: UNK
     Route: 065
  2. RISPERIDONE. [Suspect]
     Active Substance: RISPERIDONE
     Dosage: 2 MG, QD (DOSE REDUCED AND STOPPED)
     Route: 065
  3. RISPERIDONE. [Suspect]
     Active Substance: RISPERIDONE
     Indication: PSYCHOTIC DISORDER
     Dosage: UNK
     Route: 065
  4. SUVOXAMINE [Suspect]
     Active Substance: FLUVOXAMINE
     Dosage: 100 MG, QD (DOSE REDUCED AND STOPPED)
     Route: 065
  5. CLONAZEPAM. [Suspect]
     Active Substance: CLONAZEPAM
     Indication: PSYCHOTIC DISORDER
     Dosage: UNK
     Route: 065
  6. CLONAZEPAM. [Suspect]
     Active Substance: CLONAZEPAM
     Dosage: UNK
  7. SUVOXAMINE [Suspect]
     Active Substance: FLUVOXAMINE
     Dosage: 200 MG, QD (DOSE INCREASED)
     Route: 065
  8. CLONAZEPAM. [Suspect]
     Active Substance: CLONAZEPAM
     Dosage: 2 MG, QD (DOSE REDUCED AND STOPPED AND STARTED AGAIN AT 2 MG/DAY)
     Route: 065

REACTIONS (2)
  - Obsessive-compulsive disorder [None]
  - Parkinsonism [None]
